FAERS Safety Report 18162372 (Version 2)
Quarter: 2020Q4

REPORT INFORMATION
  Report Type: Other
  Country: US (occurrence: US)
  Receive Date: 20200818
  Receipt Date: 20201020
  Transmission Date: 20210113
  Serious: Yes (Hospitalization, Other)
  Sender: FDA-Public Use
  Company Number: US-INTERCEPT-PM2020001664

PATIENT
  Age: 66 Year
  Sex: Female

DRUGS (28)
  1. ZOFRAN [Concomitant]
     Active Substance: ONDANSETRON HYDROCHLORIDE
     Dosage: 4 MG, QID PRN
     Route: 042
  2. IMITREX [Concomitant]
     Active Substance: SUMATRIPTAN SUCCINATE
     Dosage: 1 TABLET AS NEEDED TWICE A DAY
     Route: 048
  3. MIDODRINE HCL [Concomitant]
     Active Substance: MIDODRINE HYDROCHLORIDE
     Route: 048
  4. OCALIVA [Suspect]
     Active Substance: OBETICHOLIC ACID
     Indication: PRIMARY BILIARY CHOLANGITIS
     Dosage: 5 MG, QD
     Route: 048
     Dates: end: 20200803
  5. FOLVITE [Concomitant]
     Active Substance: FOLIC ACID
     Dosage: 400 MG, UNK
     Route: 048
  6. XIFAXAN [Concomitant]
     Active Substance: RIFAXIMIN
     Dosage: 1 TABLET TWICE A DAY
     Route: 048
  7. GOLYTELY [Concomitant]
     Active Substance: POLYETHYLENE GLYCOL 3350\POTASSIUM CHLORIDE\SODIUM BICARBONATE\SODIUM CHLORIDE\SODIUM SULFATE
     Route: 048
  8. COMPAZINE                          /00013302/ [Concomitant]
     Active Substance: PROCHLORPERAZINE EDISYLATE
     Dosage: 1 TABLET AS DIRECTED
     Route: 048
  9. FUROSEMIDE. [Concomitant]
     Active Substance: FUROSEMIDE
     Dosage: 1 TABLET BID
     Route: 048
  10. PROAMATINE [Concomitant]
     Active Substance: MIDODRINE HYDROCHLORIDE
     Dosage: 5 MG, TID
     Route: 048
     Dates: start: 20200204
  11. TYLENOL [Concomitant]
     Active Substance: ACETAMINOPHEN
     Dosage: 650 MG, QID
     Route: 048
  12. MIRALAX [Concomitant]
     Active Substance: POLYETHYLENE GLYCOL 3350
     Dosage: 17 G, Q12H
     Route: 048
  13. LASIX [Concomitant]
     Active Substance: FUROSEMIDE
     Dosage: 1 TABLET
  14. ZINCATE [Concomitant]
     Dosage: 1 CAPSULE BID
     Route: 048
     Dates: start: 20200224
  15. COLACE [Concomitant]
     Active Substance: DOCUSATE SODIUM
     Dosage: 100 MG, BID PRN
     Route: 048
  16. OXYCODONE HYDROCHLORIDE. [Concomitant]
     Active Substance: OXYCODONE HYDROCHLORIDE
     Dosage: 1 TABLET PRN
     Route: 048
  17. SPIRONOLACTONE. [Concomitant]
     Active Substance: SPIRONOLACTONE
     Dosage: 1 TABLET BID
     Route: 048
  18. METOPROLOL TARTRATE. [Concomitant]
     Active Substance: METOPROLOL TARTRATE
     Dosage: ?? TABLET WITH FOOD BID
     Route: 048
  19. K-DUR [Concomitant]
     Active Substance: POTASSIUM CHLORIDE
     Dosage: 1 TABLET WITH FOOD
  20. POTASSIUM BICARBONATE/CITRIC ACID [Concomitant]
     Dosage: 1 TABLET ONCE A DAY
     Route: 048
  21. ALDACTONE [Concomitant]
     Active Substance: SPIRONOLACTONE
     Dosage: UNK
     Dates: start: 20200117
  22. LOVENOX [Concomitant]
     Active Substance: ENOXAPARIN SODIUM
     Dosage: 40 MG, QD
     Route: 003
  23. ACTIGALL [Concomitant]
     Active Substance: URSODIOL
     Dosage: UNK
     Dates: start: 20200121
  24. SYMBICORT [Concomitant]
     Active Substance: BUDESONIDE\FORMOTEROL FUMARATE DIHYDRATE
     Dosage: 2 PUFFS
     Route: 045
  25. CIPRO [Concomitant]
     Active Substance: CIPROFLOXACIN HYDROCHLORIDE
     Dosage: 250 MG, BID
     Route: 048
     Dates: start: 20200204
  26. VITAMIN B12 [Concomitant]
     Active Substance: CYANOCOBALAMIN
     Dosage: 1000 ??G, UNK
     Route: 048
  27. LOPRESSOR [Concomitant]
     Active Substance: METOPROLOL TARTRATE
     Dosage: UNK, BID
     Route: 048
     Dates: start: 20200204
  28. PROBIOTIC                          /06395501/ [Concomitant]
     Active Substance: BIFIDOBACTERIUM ANIMALIS LACTIS
     Dosage: 1 DF, BID
     Route: 048

REACTIONS (57)
  - Portal hypertension [Not Recovered/Not Resolved]
  - Hepatic cirrhosis [Unknown]
  - Tremor [Unknown]
  - Dysuria [Unknown]
  - Blood bilirubin abnormal [Unknown]
  - Alanine aminotransferase abnormal [Unknown]
  - Platelet count abnormal [Unknown]
  - Gastric varices [Unknown]
  - Muscle spasms [Unknown]
  - Poor personal hygiene [Unknown]
  - Blood albumin abnormal [Unknown]
  - Haematocrit abnormal [Unknown]
  - Splenomegaly [Unknown]
  - Hepatic cyst [Not Recovered/Not Resolved]
  - Lipase abnormal [Unknown]
  - Dizziness [Unknown]
  - Thrombocytopenia [Unknown]
  - Varices oesophageal [Unknown]
  - Klebsiella infection [Unknown]
  - Faeces soft [Unknown]
  - Abnormal faeces [Unknown]
  - Nausea [Unknown]
  - Petechiae [Unknown]
  - Blood sodium abnormal [Unknown]
  - Protein total abnormal [Unknown]
  - White blood cell count abnormal [Unknown]
  - Gamma-glutamyltransferase abnormal [Unknown]
  - Vision blurred [Recovered/Resolved]
  - Cachexia [Unknown]
  - Jaundice [Recovering/Resolving]
  - General physical health deterioration [Unknown]
  - Ecchymosis [Unknown]
  - Aspartate aminotransferase abnormal [Unknown]
  - Haemoglobin abnormal [Unknown]
  - Cholelithiasis [Not Recovered/Not Resolved]
  - Oedema peripheral [Unknown]
  - Encephalopathy [Recovered/Resolved]
  - Ascites [Recovered/Resolved]
  - Hypotension [Unknown]
  - Swelling [Unknown]
  - Blood potassium abnormal [Unknown]
  - Prothrombin time abnormal [Unknown]
  - International normalised ratio abnormal [Unknown]
  - Paracentesis [Recovered/Resolved]
  - Vomiting [Unknown]
  - Ocular icterus [Unknown]
  - Abdominal pain upper [Unknown]
  - Abdominal pain [Unknown]
  - Urinary tract infection [Unknown]
  - Oedema [Unknown]
  - Anaemia macrocytic [Unknown]
  - Blood alkaline phosphatase abnormal [Unknown]
  - Hypokalaemia [Unknown]
  - Blood chloride abnormal [Unknown]
  - Bilirubin conjugated abnormal [Unknown]
  - Abdominal distension [Unknown]
  - Weight fluctuation [Unknown]

NARRATIVE: CASE EVENT DATE: 2018
